FAERS Safety Report 10792040 (Version 1)
Quarter: 2015Q1

REPORT INFORMATION
  Report Type: Spontaneous
  Country: CA (occurrence: None)
  Receive Date: 20150211
  Receipt Date: 20150211
  Transmission Date: 20150721
  Serious: Yes (Life-Threatening, Other)
  Sender: FDA-Public Use
  Company Number: ADR-2015-00281

PATIENT
  Sex: Female
  Weight: 69 kg

DRUGS (33)
  1. SENNOSIDE A+B [Suspect]
     Active Substance: SENNOSIDES A AND B
  2. VITAMIN D [Suspect]
     Active Substance: CHOLECALCIFEROL
  3. NASONEX [Suspect]
     Active Substance: MOMETASONE FUROATE
  4. WARFARIN [Suspect]
     Active Substance: WARFARIN
  5. VITAMIN C [Suspect]
     Active Substance: ASCORBIC ACID
  6. ALENDRONATE [Suspect]
     Active Substance: ALENDRONATE SODIUM
  7. FUROSEMIDE (NGX) [Suspect]
     Active Substance: FUROSEMIDE
  8. ACIDOPHILUS [Suspect]
     Active Substance: LACTOBACILLUS ACIDOPHILUS
  9. OMEGA 3 FISH OIL [Suspect]
     Active Substance: FISH OIL\OMEGA-3 FATTY ACIDS
  10. ZANTAC [Suspect]
     Active Substance: RANITIDINE HYDROCHLORIDE
  11. LYRICA [Suspect]
     Active Substance: PREGABALIN
  12. CELLCEPT [Suspect]
     Active Substance: MYCOPHENOLATE MOFETIL\MYCOPHENOLATE MOFETIL HYDROCHLORIDE
  13. NORTRIPTYLINE [Suspect]
     Active Substance: NORTRIPTYLINE
  14. ANTITHYMOCYTE IMMUNOGLOBULIN [Suspect]
     Active Substance: THYMOCYTE IMMUNE GLOBULIN NOS
     Route: 042
  15. DOCUSATE SODIUM. [Suspect]
     Active Substance: DOCUSATE SODIUM
  16. IMODIUM [Suspect]
     Active Substance: LOPERAMIDE HYDROCHLORIDE
  17. NOVO-HYDRAZIDE [Suspect]
     Active Substance: HYDROCHLOROTHIAZIDE
  18. SULFATRIM [Suspect]
     Active Substance: SULFAMETHOXAZOLE\TRIMETHOPRIM
  19. ATIVAN [Suspect]
     Active Substance: LORAZEPAM
  20. B-100 COMPLEX [Suspect]
     Active Substance: DEXPANTHENOL\NIACINAMIDE\PYRIDOXINE HYDROCHLORIDE\RIBOFLAVIN 5^-PHOSPHATE SODIUM\THIAMINE HYDROCHLORIDE
  21. CALCIUM CARBONATE. [Suspect]
     Active Substance: CALCIUM CARBONATE
  22. BACLOFEN (BACLOFEN) UNKNOWN [Suspect]
     Active Substance: BACLOFEN
  23. TIZANIDINE (TIZANIDINE HYDROCHLORIDE) [Suspect]
     Active Substance: TIZANIDINE HYDROCHLORIDE
  24. VITAMIN B12 [Suspect]
     Active Substance: CYANOCOBALAMIN
  25. HYDROMORPHONE [Suspect]
     Active Substance: HYDROMORPHONE
  26. APO-K [Suspect]
     Active Substance: POTASSIUM CHLORIDE
  27. CYMBALTA [Suspect]
     Active Substance: DULOXETINE HYDROCHLORIDE
     Dosage: 1 DF, QD FOR 3 DAYS)
     Route: 048
  28. HYDROCHLORIDE [Suspect]
     Active Substance: UNSPECIFIED INGREDIENT
     Dosage: CAPSULE FOR 3 DAYS
  29. PREDNISONE. [Suspect]
     Active Substance: PREDNISONE
  30. ZOPICLONE [Suspect]
     Active Substance: ZOPICLONE
  31. LORATADINE. [Suspect]
     Active Substance: LORATADINE
  32. MELATONIN [Suspect]
     Active Substance: MELATONIN
  33. SENOKOT [Suspect]
     Active Substance: SENNOSIDES

REACTIONS (4)
  - Pneumonia aspiration [None]
  - Coma [None]
  - Gastrooesophageal reflux disease [None]
  - Somnolence [None]
